FAERS Safety Report 24785579 (Version 1)
Quarter: 2024Q4

REPORT INFORMATION
  Report Type: Spontaneous
  Country: CH (occurrence: CH)
  Receive Date: 20241228
  Receipt Date: 20241228
  Transmission Date: 20250115
  Serious: Yes (Disabling)
  Sender: TEVA
  Company Number: None

PATIENT
  Age: 59 Year
  Sex: Male
  Weight: 83 kg

DRUGS (12)
  1. DOCETAXEL [Suspect]
     Active Substance: DOCETAXEL
     Indication: Adenosquamous cell lung cancer stage IV
     Dosage: TIME INTERVAL: CYCLICAL: 75 MG/M2. 8TH CYCLE SCHEDULED FOR 12/13/24, DOCETAXEL TEVA
     Route: 040
     Dates: start: 20240704
  2. CYRAMZA [Suspect]
     Active Substance: RAMUCIRUMAB
     Indication: Adenosquamous cell lung cancer stage IV
     Dosage: TIME INTERVAL: CYCLICAL: 10 MG/KG
     Route: 040
     Dates: start: 20240905, end: 20241017
  3. CO TELMISARTAN SANDOZ [Concomitant]
     Indication: Product used for unknown indication
     Dosage: 80/12.5 MG
     Route: 048
  4. ZYPREXA [Concomitant]
     Active Substance: OLANZAPINE
     Indication: Antiemetic supportive care
     Dosage: TIME INTERVAL: AS NECESSARY: IF NECESSARY, MAX. 10 MG/DAY
     Route: 048
  5. ESOMEPRAZOLE [Concomitant]
     Active Substance: ESOMEPRAZOLE
     Indication: Product used for unknown indication
     Dosage: ESOMEP MUPS GR?NENTHAL
     Route: 048
     Dates: start: 20241017
  6. AMLODIPINE BESYLATE [Concomitant]
     Active Substance: AMLODIPINE BESYLATE
     Indication: Product used for unknown indication
     Dosage: MEPHA
     Route: 048
  7. ASPIRIN [Concomitant]
     Active Substance: ASPIRIN
     Indication: Product used for unknown indication
     Route: 048
  8. POLYETHYLENE GLYCOL 3350\POTASSIUM CHLORIDE\SODIUM BICARBONATE\SODIUM [Concomitant]
     Active Substance: POLYETHYLENE GLYCOL 3350\POTASSIUM CHLORIDE\SODIUM BICARBONATE\SODIUM CHLORIDE
     Indication: Constipation
     Dosage: TIME INTERVAL: AS NECESSARY
     Route: 048
  9. IBUPROFEN [Concomitant]
     Active Substance: IBUPROFEN
     Indication: Product used for unknown indication
     Dosage: TIME INTERVAL: AS NECESSARY
     Route: 048
  10. DEXAMETHASONE [Concomitant]
     Active Substance: DEXAMETHASONE
     Indication: Prophylaxis of nausea and vomiting
     Dosage: ACCORDING TO CHEMO REGIMEN
     Route: 048
  11. PRALUENT [Concomitant]
     Active Substance: ALIROCUMAB
     Indication: Product used for unknown indication
     Route: 058
  12. DAFALGAN [Concomitant]
     Active Substance: ACETAMINOPHEN
     Indication: Pain
     Dosage: TIME INTERVAL: AS NECESSARY: IF NECESSARY UP TO MAX. 4X/DAY (EVERY 6H)
     Route: 048
     Dates: start: 20240816

REACTIONS (1)
  - Osteonecrosis of jaw [Recovered/Resolved with Sequelae]

NARRATIVE: CASE EVENT DATE: 20241024
